FAERS Safety Report 6705794-8 (Version None)
Quarter: 2010Q2

REPORT INFORMATION
  Report Type: 
  Country: None (occurrence: None)
  Receive Date: 20100428
  Receipt Date: 20100413
  Transmission Date: 20101027
  Serious: Yes (Disabling, Other)
  Sender: FDA-Public Use
  Company Number: ACO_00695_2010

PATIENT
  Sex: Female

DRUGS (2)
  1. AMPYRA [Suspect]
     Indication: MULTIPLE SCLEROSIS
     Dosage: (10 MG BID, MORNING AND EVENING ORAL)
     Route: 048
     Dates: start: 20100403, end: 20100407
  2. REBIF [Concomitant]

REACTIONS (5)
  - ABDOMINAL DISCOMFORT [None]
  - ADVERSE REACTION [None]
  - FALL [None]
  - HOT FLUSH [None]
  - URINARY INCONTINENCE [None]
